FAERS Safety Report 10019647 (Version 1)
Quarter: 2014Q1

REPORT INFORMATION
  Report Type: Spontaneous
  Country: IE (occurrence: IE)
  Receive Date: 20140318
  Receipt Date: 20140318
  Transmission Date: 20141002
  Serious: Yes (Hospitalization)
  Sender: FDA-Public Use
  Company Number: US-ASTRAZENECA-2014SE18426

PATIENT
  Sex: Male

DRUGS (6)
  1. SYNAGIS [Suspect]
     Indication: PREMATURE BABY
     Route: 030
     Dates: start: 20140109, end: 20140109
  2. SYNAGIS [Suspect]
     Indication: PREMATURE BABY
     Route: 030
     Dates: start: 20140207
  3. ABIDEC [Concomitant]
     Indication: PRODUCT USED FOR UNKNOWN INDICATION
  4. FERINSOL [Concomitant]
     Indication: PRODUCT USED FOR UNKNOWN INDICATION
  5. FEURSEMIDE [Concomitant]
     Indication: PRODUCT USED FOR UNKNOWN INDICATION
  6. SPIRONOLACTONE [Concomitant]
     Indication: PRODUCT USED FOR UNKNOWN INDICATION

REACTIONS (6)
  - Cough [Recovering/Resolving]
  - Upper respiratory tract infection [Recovering/Resolving]
  - Wheezing [Recovering/Resolving]
  - Decreased appetite [Recovering/Resolving]
  - Pyrexia [Recovering/Resolving]
  - Malaise [Recovering/Resolving]
